FAERS Safety Report 8801457 (Version 3)
Quarter: 2012Q4

REPORT INFORMATION
  Report Type: Report from Study
  Country: US (occurrence: US)
  Receive Date: 20120921
  Receipt Date: 20121217
  Transmission Date: 20130627
  Serious: Yes (Hospitalization)
  Sender: FDA-Public Use
  Company Number: US-JNJFOC-20120908170

PATIENT
  Age: 17 Year
  Sex: Female
  Weight: 78.9 kg

DRUGS (3)
  1. REMICADE [Suspect]
     Indication: INFLAMMATORY BOWEL DISEASE
     Route: 042
     Dates: start: 20090914, end: 20110401
  2. HUMIRA [Concomitant]
     Dates: start: 20120725
  3. HUMIRA [Concomitant]
     Dates: start: 20110519

REACTIONS (2)
  - Crohn^s disease [Recovered/Resolved]
  - Anaemia [Recovered/Resolved]
